FAERS Safety Report 14774808 (Version 1)
Quarter: 2018Q2

REPORT INFORMATION
  Report Type: Spontaneous
  Country: US (occurrence: US)
  Receive Date: 20180418
  Receipt Date: 20180418
  Transmission Date: 20180711
  Serious: Yes (Other)
  Sender: FDA-Public Use
  Company Number: US-ASTELLAS-2017US052843

PATIENT
  Sex: Male

DRUGS (2)
  1. LEXISCAN [Suspect]
     Active Substance: REGADENOSON
     Indication: PRODUCT USED FOR UNKNOWN INDICATION
     Dosage: UNK UNK, UNKNOWN FREQ.
     Route: 065
     Dates: start: 2011, end: 2011
  2. LEXISCAN [Suspect]
     Active Substance: REGADENOSON
     Dosage: UNK, UNKNOWN FREQ.
     Route: 065
     Dates: start: 20171206, end: 20171206

REACTIONS (4)
  - Ischaemic stroke [Unknown]
  - Angioedema [Recovering/Resolving]
  - Dyspnoea [Unknown]
  - Haemorrhagic stroke [Unknown]
